FAERS Safety Report 7399416-3 (Version None)
Quarter: 2011Q2

REPORT INFORMATION
  Report Type: 
  Country: None (occurrence: None)
  Receive Date: 20110407
  Receipt Date: 20110324
  Transmission Date: 20111010
  Serious: Yes (Other)
  Sender: FDA-Public Use
  Company Number: PHHY2011US24570

PATIENT
  Age: 76 Year
  Sex: Female

DRUGS (5)
  1. RITALIN [Suspect]
     Dosage: 20 MG, UNK
  2. PRAVACHOL [Concomitant]
     Dosage: 80 MG, UNK
  3. PROGESTOGENS [Concomitant]
     Indication: CONTRACEPTION
  4. COREG [Concomitant]
     Dosage: 40 MG, UNK
  5. TEKTURNA (ALISKIREN FUMARATE) [Concomitant]
     Dosage: 300 MG, UNK

REACTIONS (9)
  - WAXY FLEXIBILITY [None]
  - MEMORY IMPAIRMENT [None]
  - NARCOLEPSY [None]
  - HYPERSENSITIVITY [None]
  - INFECTION [None]
  - FALL [None]
  - FEELING ABNORMAL [None]
  - INFERTILITY [None]
  - AFFECT LABILITY [None]
